FAERS Safety Report 6439029-0 (Version None)
Quarter: 2009Q4

REPORT INFORMATION
  Report Type: 
  Country: None (occurrence: None)
  Receive Date: 20091113
  Receipt Date: 20091109
  Transmission Date: 20100525
  Serious: Yes (Death)
  Sender: FDA-Public Use
  Company Number: BE-ROCHE-667727

PATIENT
  Sex: Female
  Weight: 92 kg

DRUGS (5)
  1. CAPECITABINE [Suspect]
     Dosage: DOSE: 825 MG/M2, 2X/DAY, FROM DAYS 1 TO 14.
     Route: 048
     Dates: start: 20091028
  2. DOCETAXEL [Suspect]
     Dosage: DOSE: 75 MG/M2 ON DAY 1.
     Route: 042
     Dates: start: 20091028
  3. ATACAND [Concomitant]
  4. TRAZOLAN [Concomitant]
  5. L-THYROXIN 100 [Concomitant]
     Dosage: DRUG NAME REPORTED: ELTHYROXINE 100

REACTIONS (1)
  - DEATH [None]
